FAERS Safety Report 4578803-2 (Version None)
Quarter: 2005Q1

REPORT INFORMATION
  Report Type: 
  Country: None (occurrence: None)
  Receive Date: 20050207
  Receipt Date: 20050207
  Transmission Date: 20050727
  Serious: Yes (Other)
  Sender: FDA-Public Use
  Company Number: None

PATIENT
  Sex: Female

DRUGS (1)
  1. LISINOPRIL -HCTZ 20/25 [Suspect]
     Indication: HYPERTENSION
     Dosage: 20/25 -ONE A DAY

REACTIONS (4)
  - ABDOMINAL DISCOMFORT [None]
  - BURNING SENSATION [None]
  - MUSCLE SPASMS [None]
  - PHARMACEUTICAL PRODUCT COMPLAINT [None]
